FAERS Safety Report 17873103 (Version 5)
Quarter: 2020Q4

REPORT INFORMATION
  Report Type: Report from Study
  Country: US (occurrence: US)
  Receive Date: 20200608
  Receipt Date: 20201017
  Transmission Date: 20210113
  Serious: Yes (Other)
  Sender: FDA-Public Use
  Company Number: NVSC2020US158725

PATIENT
  Age: 24 Year
  Sex: Male

DRUGS (1)
  1. COSENTYX [Suspect]
     Active Substance: SECUKINUMAB
     Indication: PSORIASIS
     Dosage: UNK UNK, UNKNOWN
     Route: 065

REACTIONS (3)
  - Upper respiratory tract infection [Unknown]
  - Lower respiratory tract infection [Unknown]
  - Psoriasis [Unknown]
